FAERS Safety Report 4884715-7 (Version None)
Quarter: 2006Q1

REPORT INFORMATION
  Report Type: 
  Country: None (occurrence: None)
  Receive Date: 20060117
  Receipt Date: 20060104
  Transmission Date: 20060701
  Serious: Yes (Other)
  Sender: FDA-Public Use
  Company Number: 2006001417

PATIENT
  Sex: Male

DRUGS (2)
  1. VIAGRA [Suspect]
     Indication: ERECTILE DYSFUNCTION
  2. CELEBREX [Suspect]
     Indication: INFLAMMATION
     Dosage: (200 MG)
     Dates: start: 20051222

REACTIONS (7)
  - BLOOD PRESSURE DECREASED [None]
  - DIZZINESS [None]
  - DRUG INEFFECTIVE [None]
  - DYSURIA [None]
  - INFLAMMATION [None]
  - PAIN [None]
  - PROSTATE CANCER [None]
